FAERS Safety Report 7258789-2 (Version None)
Quarter: 2011Q1

REPORT INFORMATION
  Report Type: 
  Country: None (occurrence: None)
  Receive Date: 20110129
  Receipt Date: 20100515
  Transmission Date: 20110831
  Serious: No
  Sender: FDA-Public Use
  Company Number: US-ABBOTT-10P-163-0645222-00

PATIENT
  Age: 56 Year
  Sex: Female

DRUGS (5)
  1. TRAMADOL HCL [Concomitant]
     Indication: PAIN
     Route: 048
  2. HUMIRA [Suspect]
     Indication: RHEUMATOID ARTHRITIS
     Dates: start: 20060101
  3. SIMVASTATIN [Concomitant]
     Indication: BLOOD CHOLESTEROL
     Route: 048
  4. LYRICA [Concomitant]
     Indication: BLOOD CHOLESTEROL
     Route: 048
  5. IBUPROFEN [Concomitant]
     Indication: PAIN

REACTIONS (3)
  - BACK PAIN [None]
  - ARTHRALGIA [None]
  - JOINT LOCK [None]
